FAERS Safety Report 5907032-2 (Version None)
Quarter: 2008Q4

REPORT INFORMATION
  Report Type: 
  Country: None (occurrence: None)
  Receive Date: 20081003
  Receipt Date: 20080926
  Transmission Date: 20090506
  Serious: Yes (Hospitalization)
  Sender: FDA-Public Use
  Company Number: DE-BRISTOL-MYERS SQUIBB COMPANY-14351092

PATIENT
  Sex: Male
  Weight: 77 kg

DRUGS (8)
  1. COUMADIN [Suspect]
     Indication: THROMBOSIS PROPHYLAXIS
     Dosage: CUMULATIVE DOSE-360 MG
     Route: 048
     Dates: start: 20071004, end: 20071216
  2. PLAVIX [Suspect]
     Indication: THROMBOSIS PROPHYLAXIS
     Dosage: CUMULATIVE DOSE-5400 MG
     Route: 048
     Dates: start: 20071004, end: 20071216
  3. VIANI [Concomitant]
     Indication: IDIOPATHIC PULMONARY FIBROSIS
     Dosage: DOSAGE FORM = INHALATION
     Route: 055
     Dates: start: 20051201
  4. TILIDINE HCL + NALOXONE HCL [Concomitant]
     Indication: MUSCULOSKELETAL PAIN
     Route: 048
     Dates: start: 20070901
  5. ACTRAPHANE [Concomitant]
     Indication: TYPE 1 DIABETES MELLITUS
     Route: 058
     Dates: start: 19980101
  6. SIMVAHEXAL [Concomitant]
     Indication: HYPERLIPIDAEMIA
     Dosage: CUMULATIVE DOSE=3440MG
     Route: 048
     Dates: start: 20071102, end: 20071216
  7. RANITIDINE [Concomitant]
     Indication: DYSPEPSIA
     Dosage: DOSAGE FORM-TABLET
     Route: 048
     Dates: start: 20040101, end: 20071125
  8. THROMBAREDUCT SANDOZ [Concomitant]

REACTIONS (1)
  - THROMBOCYTOPENIA [None]
